FAERS Safety Report 14509407 (Version 1)
Quarter: 2018Q1

REPORT INFORMATION
  Report Type: Spontaneous
  Country: TR (occurrence: TR)
  Receive Date: 20180209
  Receipt Date: 20180209
  Transmission Date: 20180509
  Serious: Yes (Hospitalization, Other)
  Sender: FDA-Public Use
  Company Number: ALCN2011TR004544

PATIENT
  Age: 65 Year
  Sex: Male

DRUGS (1)
  1. PROPARACAINE HCL [Suspect]
     Active Substance: PROPARACAINE HYDROCHLORIDE
     Indication: PRODUCT USED FOR UNKNOWN INDICATION
     Dosage: DROPS
     Route: 061

REACTIONS (12)
  - Corneal neovascularisation [Unknown]
  - Visual acuity reduced [Unknown]
  - Eye pain [Recovered/Resolved]
  - Keratopathy [Unknown]
  - Eye pruritus [Unknown]
  - Ocular hyperaemia [Unknown]
  - Corneal infiltrates [Unknown]
  - Conjunctival hyperaemia [Unknown]
  - Corneal epithelium defect [Unknown]
  - Drug abuse [Unknown]
  - Corneal oedema [Unknown]
  - Vision blurred [Unknown]
